FAERS Safety Report 16563494 (Version 3)
Quarter: 2019Q3

REPORT INFORMATION
  Report Type: Report from Study
  Country: None (occurrence: DE)
  Receive Date: 20190712
  Receipt Date: 20190825
  Transmission Date: 20191004
  Serious: Yes (Death)
  Sender: FDA-Public Use
  Company Number: DE-ABBVIE-19K-062-2850187-00

PATIENT
  Sex: Male

DRUGS (9)
  1. AGOMELATINE [Concomitant]
     Active Substance: AGOMELATINE
     Indication: PRODUCT USED FOR UNKNOWN INDICATION
  2. RIVAROXABAN [Concomitant]
     Active Substance: RIVAROXABAN
     Indication: PRODUCT USED FOR UNKNOWN INDICATION
  3. MADOPAR DEPOT [Concomitant]
     Active Substance: BENSERAZIDE HYDROCHLORIDE\LEVODOPA
     Indication: PRODUCT USED FOR UNKNOWN INDICATION
  4. CLOZAPINE. [Concomitant]
     Active Substance: CLOZAPINE
     Indication: PRODUCT USED FOR UNKNOWN INDICATION
  5. DARIFENACINE [Concomitant]
     Indication: PRODUCT USED FOR UNKNOWN INDICATION
  6. DUTASTERIDA [Concomitant]
     Active Substance: DUTASTERIDE
     Indication: PRODUCT USED FOR UNKNOWN INDICATION
  7. ATORVASTATINE [Concomitant]
     Active Substance: ATORVASTATIN
     Indication: PRODUCT USED FOR UNKNOWN INDICATION
  8. GABAPENTINE [Concomitant]
     Active Substance: GABAPENTIN
     Indication: PRODUCT USED FOR UNKNOWN INDICATION
  9. DUODOPA [Suspect]
     Active Substance: CARBIDOPA\LEVODOPA
     Indication: PARKINSON^S DISEASE
     Dosage: MD 11.0 ML, CRD 3.6 ML/HR, ED 4.0 ML
     Route: 050
     Dates: start: 20150127, end: 20190710

REACTIONS (8)
  - General physical health deterioration [Fatal]
  - Cachexia [Fatal]
  - Intentional medical device removal by patient [Unknown]
  - Asthenia [Fatal]
  - Hypophagia [Unknown]
  - Fluid intake reduced [Unknown]
  - Suicidal ideation [Fatal]
  - Device dislocation [Unknown]
